FAERS Safety Report 14851835 (Version 1)
Quarter: 2018Q2

REPORT INFORMATION
  Report Type: Spontaneous
  Country: CN (occurrence: CN)
  Receive Date: 20180507
  Receipt Date: 20180507
  Transmission Date: 20180711
  Serious: Yes (Life-Threatening)
  Sender: FDA-Public Use
  Company Number: CN-ROCHE-2119236

PATIENT
  Age: 68 Year
  Sex: Female

DRUGS (1)
  1. ALTEPLASE. [Suspect]
     Active Substance: ALTEPLASE
     Indication: THERAPEUTIC PROCEDURE
     Route: 041
     Dates: start: 20180202, end: 20180202

REACTIONS (1)
  - Coma [Unknown]

NARRATIVE: CASE EVENT DATE: 20180202
